FAERS Safety Report 21733748 (Version 1)
Quarter: 2022Q4

REPORT INFORMATION
  Report Type: Spontaneous
  Country: JP (occurrence: JP)
  Receive Date: 20221215
  Receipt Date: 20221215
  Transmission Date: 20230113
  Serious: Yes (Life-Threatening, Hospitalization)
  Sender: FDA-Public Use
  Company Number: JP-PFIZER INC-PV202200118181

PATIENT
  Age: 75 Year
  Sex: Male

DRUGS (2)
  1. DEXMEDETOMIDINE HYDROCHLORIDE [Suspect]
     Active Substance: DEXMEDETOMIDINE HYDROCHLORIDE
     Indication: Sedation
     Dosage: 0.3 TO 0.7 MCG/KG/H
  2. THIAMYLAL [Concomitant]
     Active Substance: THIAMYLAL
     Route: 042

REACTIONS (1)
  - Cardiac arrest [Recovering/Resolving]
